FAERS Safety Report 8172729-3 (Version None)
Quarter: 2012Q1

REPORT INFORMATION
  Report Type: 
  Country: None (occurrence: None)
  Receive Date: 20120229
  Receipt Date: 20120221
  Transmission Date: 20120608
  Serious: Yes (Other)
  Sender: FDA-Public Use
  Company Number: US-US-EMD SERONO, INC.-7114704

PATIENT
  Sex: Female

DRUGS (7)
  1. MORPHINE [Concomitant]
     Indication: PAIN IN EXTREMITY
  2. GABAPENTIN [Concomitant]
     Indication: HYPOAESTHESIA
  3. GABAPENTIN [Concomitant]
     Indication: GRIP STRENGTH DECREASED
  4. REBIF [Suspect]
     Indication: MULTIPLE SCLEROSIS
     Route: 058
     Dates: start: 20100517
  5. VICODIN [Concomitant]
     Indication: FACIAL PAIN
  6. MORPHINE [Concomitant]
     Indication: FACIAL PAIN
  7. VICODIN [Concomitant]
     Indication: PAIN IN EXTREMITY

REACTIONS (5)
  - HEADACHE [None]
  - PAIN IN JAW [None]
  - CARPAL TUNNEL SYNDROME [None]
  - PARAESTHESIA [None]
  - MULTIPLE SCLEROSIS RELAPSE [None]
